FAERS Safety Report 8929241 (Version 1)
Quarter: 2012Q4

REPORT INFORMATION
  Report Type: Spontaneous
  Country: US (occurrence: None)
  Receive Date: 20121126
  Receipt Date: 20121126
  Transmission Date: 20130627
  Serious: Yes (Other)
  Sender: FDA-Public Use
  Company Number: None

PATIENT
  Age: 74 Year
  Sex: Female
  Weight: 90.72 kg

DRUGS (1)
  1. CLINDAMYCIN [Suspect]
     Indication: GUM INFECTION
     Route: 048
     Dates: start: 20121009, end: 20121010

REACTIONS (3)
  - Chest pain [None]
  - Back pain [None]
  - Feeling abnormal [None]
